FAERS Safety Report 4903318-9 (Version None)
Quarter: 2006Q1

REPORT INFORMATION
  Report Type: 
  Country: None (occurrence: None)
  Receive Date: 20060206
  Receipt Date: 20060206
  Transmission Date: 20060701
  Serious: Yes (Hospitalization)
  Sender: FDA-Public Use
  Company Number: None

PATIENT
  Sex: Female
  Weight: 68.4932 kg

DRUGS (11)
  1. DOCETAXEL [Suspect]
     Indication: PANCREATIC CARCINOMA
     Dosage: 53 MG IV
     Route: 042
     Dates: start: 20060130
  2. CAPECITABINE [Suspect]
     Indication: PANCREATIC CARCINOMA
     Dosage: 1400 MG BID PO
     Route: 048
     Dates: start: 20060203
  3. PANGESTYME [Concomitant]
  4. GABAPENTIN [Concomitant]
  5. GASS X [Concomitant]
  6. METROLOPROMIDE [Concomitant]
  7. NEXIUM [Concomitant]
  8. LORAZEPAM [Concomitant]
  9. LACTULOSE [Concomitant]
  10. LANTUS [Concomitant]
  11. INSULIN NOVOLOG [Concomitant]

REACTIONS (3)
  - CATHETER RELATED COMPLICATION [None]
  - DEEP VEIN THROMBOSIS [None]
  - OEDEMA PERIPHERAL [None]
